FAERS Safety Report 8955148 (Version 1)
Quarter: 2012Q4

REPORT INFORMATION
  Report Type: 
  Country: US (occurrence: US)
  Receive Date: 20121207
  Receipt Date: 20121207
  Transmission Date: 20130627
  Serious: No
  Sender: FDA-Public Use
  Company Number: US-BAYER-2012-121378

PATIENT
  Age: 43 Year
  Sex: Female

DRUGS (6)
  1. BETASERON [Suspect]
     Dosage: 0.25 mg, QOD
     Route: 058
  2. LOESTRIN [Concomitant]
  3. VITAMIN D [Concomitant]
  4. ADVIL [Concomitant]
     Dosage: 200 mg, UNK
  5. MULTI VITAMIN [Concomitant]
  6. TYLENOL 8 HOUR [Concomitant]
     Dosage: 650 mg, UNK

REACTIONS (2)
  - Injection site rash [Unknown]
  - Fatigue [Unknown]
